FAERS Safety Report 5486758-1 (Version None)
Quarter: 2007Q4

REPORT INFORMATION
  Report Type: 
  Country: None (occurrence: None)
  Receive Date: 20071016
  Receipt Date: 20071012
  Transmission Date: 20080405
  Serious: Yes (Life-Threatening, Hospitalization, Other)
  Sender: FDA-Public Use
  Company Number: A0687578A

PATIENT
  Age: 61 Year
  Sex: Female

DRUGS (2)
  1. LAMICTAL [Suspect]
     Dosage: 50MG PER DAY
     Route: 048
     Dates: start: 20070809, end: 20070917
  2. SEROQUEL [Concomitant]

REACTIONS (7)
  - CHILLS [None]
  - HEADACHE [None]
  - HEPATIC CYST [None]
  - HEPATIC FAILURE [None]
  - LYMPHADENOPATHY [None]
  - PYREXIA [None]
  - RASH [None]
